FAERS Safety Report 5907743-9 (Version None)
Quarter: 2008Q3

REPORT INFORMATION
  Report Type: 
  Country: None (occurrence: None)
  Receive Date: 20080929
  Receipt Date: 20080915
  Transmission Date: 20090109
  Serious: Yes (Congenital Anomaly, Other)
  Sender: FDA-Public Use
  Company Number: MPS1-1000063

PATIENT
  Age: 15 Month
  Sex: Female
  Weight: 12.2 kg

DRUGS (1)
  1. ALDURAZYME [Suspect]
     Indication: MUCOPOLYSACCHARIDOSIS I
     Dosage: 100 IU/KG, QW, INTRAVENOUS
     Dates: start: 20070627, end: 20080508

REACTIONS (2)
  - OEDEMA PERIPHERAL [None]
  - VENOUS OCCLUSION [None]
